FAERS Safety Report 9529562 (Version 1)
Quarter: 2013Q3

REPORT INFORMATION
  Report Type: Report from Study
  Country: US (occurrence: US)
  Receive Date: 20130917
  Receipt Date: 20130917
  Transmission Date: 20140515
  Serious: Yes (Other)
  Sender: FDA-Public Use
  Company Number: US-JNJFOC-20130904413

PATIENT
  Age: 70 Year
  Sex: Female
  Weight: 63.05 kg

DRUGS (13)
  1. REMICADE [Suspect]
     Indication: RHEUMATOID ARTHRITIS
     Route: 042
     Dates: start: 20130904
  2. REMICADE [Suspect]
     Indication: RHEUMATOID ARTHRITIS
     Route: 042
     Dates: start: 2010
  3. CETIRIZINE [Concomitant]
     Indication: SINUS DISORDER
     Route: 048
     Dates: start: 201307
  4. FOLIC ACID [Concomitant]
     Dosage: 1MG OR 1MCG
     Route: 048
  5. METHOTREXATE [Concomitant]
     Indication: RHEUMATOID ARTHRITIS
     Route: 048
  6. B 12 [Concomitant]
     Route: 048
  7. OMEPRAZOLE [Concomitant]
     Indication: GASTROOESOPHAGEAL REFLUX DISEASE
     Dosage: ONCE OR TWICE
     Route: 048
  8. MELOXICAM [Concomitant]
     Route: 048
  9. CALCIUM [Concomitant]
     Indication: OSTEOPENIA
     Route: 048
  10. RECLAST [Concomitant]
     Indication: OSTEOPENIA
     Route: 042
     Dates: start: 2012
  11. ASPIRIN [Concomitant]
     Route: 048
  12. ALBUTEROL [Concomitant]
     Indication: DYSPNOEA
     Route: 055
     Dates: start: 20130701
  13. AMLODIPINE [Concomitant]
     Indication: BLOOD PRESSURE
     Route: 048
     Dates: start: 201308

REACTIONS (4)
  - Myocardial infarction [Recovered/Resolved]
  - Dyspnoea [Recovered/Resolved]
  - Chest pain [Recovered/Resolved]
  - Arthropod bite [Recovered/Resolved]
